FAERS Safety Report 4684928-3 (Version None)
Quarter: 2005Q2

REPORT INFORMATION
  Report Type: 
  Country: None (occurrence: None)
  Receive Date: 20050606
  Receipt Date: 20050606
  Transmission Date: 20051028
  Serious: Yes (Other)
  Sender: FDA-Public Use
  Company Number: None

PATIENT
  Age: 64 Year
  Sex: Male
  Weight: 70.7611 kg

DRUGS (1)
  1. ZOSYN [Suspect]
     Indication: PNEUMONIA
     Dosage: 2.25 GM IV Q 8 HRS
     Route: 042
     Dates: start: 20050303, end: 20050307

REACTIONS (1)
  - RASH [None]
